FAERS Safety Report 7356506-9 (Version None)
Quarter: 2011Q1

REPORT INFORMATION
  Report Type: 
  Country: None (occurrence: None)
  Receive Date: 20110316
  Receipt Date: 20110302
  Transmission Date: 20110831
  Serious: Yes (Other)
  Sender: FDA-Public Use
  Company Number: PHHY2010BR59993

PATIENT
  Sex: Male

DRUGS (1)
  1. FORASEQ [Suspect]
     Dosage: 12/400 MCG EVERY 8 HOURS

REACTIONS (3)
  - EMPHYSEMA [None]
  - DRUG DOSE OMISSION [None]
  - FATIGUE [None]
